FAERS Safety Report 17849518 (Version 11)
Quarter: 2021Q3

REPORT INFORMATION
  Report Type: Report from Study
  Country: CA (occurrence: CA)
  Receive Date: 20200602
  Receipt Date: 20210927
  Transmission Date: 20211014
  Serious: Yes (Other)
  Sender: FDA-Public Use
  Company Number: PHHY2016CA150237

PATIENT
  Age: 55 Year
  Sex: Male

DRUGS (12)
  1. SANDOSTATIN LAR DEPOT [Suspect]
     Active Substance: OCTREOTIDE ACETATE
     Dosage: 60 MG, QMO (EVERY 4 WEEKS)
     Route: 030
     Dates: start: 20161026
  2. OCTREOTIDE. [Suspect]
     Active Substance: OCTREOTIDE
     Indication: CARCINOID TUMOUR
     Dosage: 50 UG (TEST DOSE)
     Route: 058
     Dates: start: 20161020, end: 20161020
  3. OCTREOTIDE. [Suspect]
     Active Substance: OCTREOTIDE
  4. PNEUMOVAX 23 [Concomitant]
     Active Substance: PNEUMOCOCCAL VACCINE, POLYVALENT 23
     Indication: IMMUNISATION
     Dosage: UNK
     Route: 065
     Dates: start: 20201007
  5. SANDOSTATIN LAR DEPOT [Suspect]
     Active Substance: OCTREOTIDE ACETATE
     Dosage: 40 MG, QMO
     Route: 030
  6. LORAZEPAM. [Suspect]
     Active Substance: LORAZEPAM
     Indication: SLEEP DISORDER
     Dosage: UNK
     Route: 065
  7. TRAMACET [Concomitant]
     Active Substance: ACETAMINOPHEN\TRAMADOL
     Indication: PRODUCT USED FOR UNKNOWN INDICATION
     Route: 065
  8. VITAMIN B12 [Concomitant]
     Active Substance: CYANOCOBALAMIN
     Indication: PRODUCT USED FOR UNKNOWN INDICATION
     Dosage: UNK
     Route: 065
  9. SANDOSTATIN LAR DEPOT [Suspect]
     Active Substance: OCTREOTIDE ACETATE
     Indication: CARCINOID TUMOUR
     Dosage: 30 MG, QMO (EVERY 4 WEEKS)
     Route: 030
     Dates: start: 20161026
  10. OCTREOTIDE. [Suspect]
     Active Substance: OCTREOTIDE
  11. MENACTRA [Concomitant]
     Active Substance: NEISSERIA MENINGITIDIS GROUP A CAPSULAR POLYSACCHARIDE DIPHTHERIA TOXOID CONJUGATE ANTIGEN\NEISSERIA MENINGITIDIS GROUP C CAPSULAR POLYSACCHARIDE DIPHTHERIA TOXOID CONJUGATE ANTIGEN\NEISSERIA MENINGITIDIS GROUP W-135 CAPSULAR POLYSACCHARIDE DIPHTHERIA TOXOID CONJUGATE ANTIGEN\NEISSERIA MENINGITIDIS
     Indication: IMMUNISATION
     Dosage: UNK (IMMUNIZATION)
     Route: 065
     Dates: start: 20201007
  12. SANDOSTATIN LAR DEPOT [Suspect]
     Active Substance: OCTREOTIDE ACETATE
     Dosage: 60 MG, QMO
     Route: 030

REACTIONS (27)
  - Pyrexia [Unknown]
  - Splenic lesion [Unknown]
  - Metastases to spleen [Unknown]
  - Injection site pain [Unknown]
  - Dyspnoea [Unknown]
  - Flushing [Unknown]
  - Cough [Recovering/Resolving]
  - Nasopharyngitis [Recovering/Resolving]
  - Malaise [Unknown]
  - Malignant neoplasm progression [Unknown]
  - Pain [Unknown]
  - Pain in extremity [Unknown]
  - Erythema [Unknown]
  - Diverticulitis [Unknown]
  - Bone lesion [Unknown]
  - Oropharyngeal pain [Recovering/Resolving]
  - Loss of consciousness [Unknown]
  - Hepatic neoplasm [Unknown]
  - Metastases to spine [Unknown]
  - Nervousness [Unknown]
  - Arthritis [Unknown]
  - Arthralgia [Unknown]
  - Blood pressure increased [Unknown]
  - Asthenia [Unknown]
  - Blood test abnormal [Unknown]
  - Blood creatinine increased [Unknown]
  - Skin warm [Unknown]

NARRATIVE: CASE EVENT DATE: 201610
